FAERS Safety Report 15952621 (Version 1)
Quarter: 2019Q1

REPORT INFORMATION
  Report Type: Spontaneous
  Country: IN (occurrence: IN)
  Receive Date: 20190211
  Receipt Date: 20190211
  Transmission Date: 20190417
  Serious: Yes (Other)
  Sender: FDA-Public Use
  Company Number: PHHY2019IN030939

PATIENT
  Age: 7 Year
  Sex: Male

DRUGS (8)
  1. MOXIFLOXACIN. [Suspect]
     Active Substance: MOXIFLOXACIN
     Indication: TUBERCULOMA OF CENTRAL NERVOUS SYSTEM
     Dosage: UNK
     Route: 065
     Dates: end: 201408
  2. AMIKACIN. [Suspect]
     Active Substance: AMIKACIN
     Indication: TUBERCULOMA OF CENTRAL NERVOUS SYSTEM
     Dosage: UNK
     Route: 065
     Dates: end: 201408
  3. CLOFAZIMINE [Suspect]
     Active Substance: CLOFAZIMINE
     Indication: TUBERCULOMA OF CENTRAL NERVOUS SYSTEM
     Dosage: UNK
     Route: 065
     Dates: end: 201408
  4. PREDNISOLONE. [Suspect]
     Active Substance: PREDNISOLONE
     Indication: TUBERCULOMA OF CENTRAL NERVOUS SYSTEM
     Dosage: 2 MG/KG, QD
     Route: 065
  5. 4-AMINOSALICYLIC ACID [Suspect]
     Active Substance: AMINOSALICYLIC ACID
     Indication: TUBERCULOMA OF CENTRAL NERVOUS SYSTEM
     Dosage: UNK
     Route: 065
     Dates: end: 201408
  6. ETHIONAMIDE [Suspect]
     Active Substance: ETHIONAMIDE
     Indication: TUBERCULOMA OF CENTRAL NERVOUS SYSTEM
     Dosage: UNK
     Route: 065
     Dates: end: 201408
  7. LINEZOLID. [Suspect]
     Active Substance: LINEZOLID
     Indication: TUBERCULOMA OF CENTRAL NERVOUS SYSTEM
     Dosage: UNK
     Route: 065
     Dates: end: 201408
  8. CYCLOSERINE. [Suspect]
     Active Substance: CYCLOSERINE
     Indication: TUBERCULOMA OF CENTRAL NERVOUS SYSTEM
     Dosage: UNK
     Route: 065
     Dates: end: 201408

REACTIONS (1)
  - Tuberculoma of central nervous system [Unknown]
